FAERS Safety Report 5980220-5 (Version None)
Quarter: 2008Q4

REPORT INFORMATION
  Report Type: 
  Country: None (occurrence: None)
  Receive Date: 20081202
  Receipt Date: 20081202
  Transmission Date: 20090506
  Serious: Yes (Life-Threatening, Hospitalization, Other)
  Sender: FDA-Public Use
  Company Number: None

PATIENT
  Age: 60 Year
  Sex: Female
  Weight: 61 kg

DRUGS (4)
  1. CEFTRIAXONE [Suspect]
     Indication: PYREXIA
     Dosage: 1 GRAM ONCE IM
     Route: 030
     Dates: start: 20081127, end: 20081127
  2. CEFTRIAXONE [Suspect]
     Indication: WHITE BLOOD CELL COUNT INCREASED
     Dosage: 1 GRAM ONCE IM
     Route: 030
     Dates: start: 20081127, end: 20081127
  3. MEPERIDINE HCL [Concomitant]
  4. PROMETHAZINE [Concomitant]

REACTIONS (2)
  - FALL [None]
  - RESPIRATORY ARREST [None]
